FAERS Safety Report 7820214-8 (Version None)
Quarter: 2011Q4

REPORT INFORMATION
  Report Type: 
  Country: None (occurrence: None)
  Receive Date: 20111018
  Receipt Date: 20111004
  Transmission Date: 20120403
  Serious: Yes (Hospitalization, Other)
  Sender: FDA-Public Use
  Company Number: US-ELI_LILLY_AND_COMPANY-US201106007912

PATIENT
  Sex: Female

DRUGS (2)
  1. FORTEO [Suspect]
     Dosage: UNK UNK, UNKNOWN
  2. FORTEO [Suspect]

REACTIONS (5)
  - HIP FRACTURE [None]
  - BACK PAIN [None]
  - FALL [None]
  - TOOTH INFECTION [None]
  - SURGERY [None]
